FAERS Safety Report 12199114 (Version 1)
Quarter: 2016Q1

REPORT INFORMATION
  Report Type: Spontaneous
  Country: US (occurrence: None)
  Receive Date: 20160321
  Receipt Date: 20160321
  Transmission Date: 20160526
  Serious: Yes (Other)
  Sender: FDA-Public Use
  Company Number: None

PATIENT
  Age: 69 Year
  Sex: Male
  Weight: 68.95 kg

DRUGS (4)
  1. CEPHALEXIN. [Suspect]
     Active Substance: CEPHALEXIN
     Indication: ABDOMINAL ABSCESS
     Dosage: 500 MG, 4 X^S A DAY FOUR TIMES TAKEN BY MOUTH
     Route: 048
     Dates: start: 20160208, end: 20160316
  2. VITAMIN DAILY [Concomitant]
  3. PROBIOTICS [Concomitant]
     Active Substance: PROBIOTICS NOS
  4. LOPERAMIDE [Concomitant]
     Active Substance: LOPERAMIDE

REACTIONS (9)
  - Skin disorder [None]
  - Product substitution issue [None]
  - Secretion discharge [None]
  - Haematuria [None]
  - Vesical fistula [None]
  - Drug ineffective [None]
  - Dysuria [None]
  - Disease recurrence [None]
  - Discomfort [None]

NARRATIVE: CASE EVENT DATE: 20160319
